FAERS Safety Report 9511986 (Version 1)
Quarter: 2013Q3

REPORT INFORMATION
  Report Type: Spontaneous
  Country: IN (occurrence: None)
  Receive Date: 20130906
  Receipt Date: 20130906
  Transmission Date: 20140515
  Serious: Yes (Hospitalization, Other)
  Sender: FDA-Public Use
  Company Number: AUR-APL-2013-07400

PATIENT
  Age: 46 Year
  Sex: Female
  Weight: 83 kg

DRUGS (4)
  1. QUETIAPINE [Suspect]
     Indication: ACUTE PSYCHOSIS
  2. SERTRALINE [Suspect]
     Indication: DEPRESSIVE SYMPTOM
  3. CLONAZEPAM [Suspect]
     Indication: ACUTE PSYCHOSIS
  4. TRIFLUOPERAZINE [Suspect]
     Indication: ACUTE PSYCHOSIS

REACTIONS (13)
  - Somatoform disorder pregnancy [None]
  - Hyperprolactinaemia [None]
  - Metabolic syndrome [None]
  - Depressive symptom [None]
  - Amenorrhoea [None]
  - Galactorrhoea [None]
  - Obesity [None]
  - Psychotic disorder [None]
  - Irritability [None]
  - Aggression [None]
  - Blood triglycerides increased [None]
  - High density lipoprotein decreased [None]
  - Uterine leiomyoma [None]
